FAERS Safety Report 5254909-X (Version None)
Quarter: 2007Q1

REPORT INFORMATION
  Report Type: 
  Country: None (occurrence: None)
  Receive Date: 20070302
  Receipt Date: 20070302
  Transmission Date: 20070707
  Serious: No
  Sender: FDA-Public Use
  Company Number: None

PATIENT
  Age: 58 Year
  Sex: Male
  Weight: 102.3 kg

DRUGS (3)
  1. METOPROLOL TARTRATE [Suspect]
     Indication: CORONARY ARTERY DISEASE
     Dosage: 50MG BID PO
     Route: 048
     Dates: start: 20060614, end: 20070228
  2. METOPROLOL TARTRATE [Suspect]
     Indication: HYPERTENSION
     Dosage: 50MG BID PO
     Route: 048
     Dates: start: 20060614, end: 20070228
  3. LORATADINE [Suspect]
     Indication: HYPERSENSITIVITY
     Dosage: 10MG QD PO
     Route: 048
     Dates: start: 20070117, end: 20070228

REACTIONS (5)
  - DRUG DOSE OMISSION [None]
  - DRUG INEFFECTIVE [None]
  - DYSPNOEA [None]
  - NAUSEA [None]
  - SINUS TACHYCARDIA [None]
